FAERS Safety Report 15533397 (Version 2)
Quarter: 2018Q4

REPORT INFORMATION
  Report Type: Spontaneous
  Country: CN (occurrence: CN)
  Receive Date: 20181019
  Receipt Date: 20181116
  Transmission Date: 20190205
  Serious: Yes (Other)
  Sender: FDA-Public Use
  Company Number: CN-JNJFOC-20181023968

PATIENT

DRUGS (3)
  1. DUROGESIC [Suspect]
     Active Substance: FENTANYL
     Indication: CANCER PAIN
     Route: 062
  2. DUROGESIC [Suspect]
     Active Substance: FENTANYL
     Indication: CANCER PAIN
     Route: 062
  3. DUROGESIC [Suspect]
     Active Substance: FENTANYL
     Indication: CANCER PAIN
     Route: 062

REACTIONS (8)
  - Dizziness [Recovered/Resolved]
  - Inadequate analgesia [Unknown]
  - Vomiting [Unknown]
  - Wrong technique in product usage process [Unknown]
  - Gastrointestinal disorder [Recovered/Resolved]
  - Constipation [Unknown]
  - Respiratory depression [Recovered/Resolved]
  - Nausea [Unknown]
